FAERS Safety Report 15317541 (Version 1)
Quarter: 2018Q3

REPORT INFORMATION
  Report Type: Report from Study
  Country: US (occurrence: US)
  Receive Date: 20180824
  Receipt Date: 20180824
  Transmission Date: 20181010
  Serious: Yes (Other)
  Sender: FDA-Public Use
  Company Number: US-GILEAD-2018-0359143

PATIENT
  Sex: Male

DRUGS (1)
  1. RANOLAZINE. [Suspect]
     Active Substance: RANOLAZINE
     Indication: PRODUCT USED FOR UNKNOWN INDICATION
     Dosage: 1000 MG, BID
     Route: 048
     Dates: start: 2013

REACTIONS (4)
  - Intentional product use issue [Not Recovered/Not Resolved]
  - Stent placement [Unknown]
  - Myocardial infarction [Unknown]
  - Off label use [Not Recovered/Not Resolved]
